FAERS Safety Report 25836501 (Version 1)
Quarter: 2025Q3

REPORT INFORMATION
  Report Type: Spontaneous
  Country: US (occurrence: US)
  Receive Date: 20250923
  Receipt Date: 20250923
  Transmission Date: 20251021
  Serious: No
  Sender: TETRAPHASE PHARMACEUTICALS
  Company Number: US-TETRAPHASE PHARMACEUTICALS, INC-2024-ISTX-000110

PATIENT

DRUGS (1)
  1. XERAVA [Suspect]
     Active Substance: ERAVACYCLINE DIHYDROCHLORIDE
     Indication: Klebsiella infection
     Route: 065

REACTIONS (2)
  - Salivary hypersecretion [Unknown]
  - Off label use [Unknown]
